FAERS Safety Report 19455672 (Version 1)
Quarter: 2021Q2

REPORT INFORMATION
  Report Type: Spontaneous
  Country: US (occurrence: US)
  Receive Date: 20210623
  Receipt Date: 20210623
  Transmission Date: 20210717
  Serious: Yes (Death)
  Sender: FDA-Public Use
  Company Number: None

PATIENT
  Age: 83 Year
  Sex: Male

DRUGS (6)
  1. REVLIMID [Suspect]
     Active Substance: LENALIDOMIDE
     Indication: MANTLE CELL LYMPHOMA
     Dosage: 10 MG QD X21/28D ORAL
     Route: 048
     Dates: start: 20210430, end: 20210521
  2. TAMSULOSIN [Concomitant]
     Active Substance: TAMSULOSIN
  3. RITUXIMAB. [Concomitant]
     Active Substance: RITUXIMAB
  4. FINASTERIDE. [Concomitant]
     Active Substance: FINASTERIDE
  5. ALLOPURINOL. [Concomitant]
     Active Substance: ALLOPURINOL
  6. BENADRYL AND STEROIDS [Concomitant]

REACTIONS (11)
  - Sepsis [None]
  - Hypoxia [None]
  - Acute respiratory failure [None]
  - Acute kidney injury [None]
  - Unresponsive to stimuli [None]
  - Oxygen saturation decreased [None]
  - Rash [None]
  - Urinary retention [None]
  - Oedema [None]
  - Hypertension [None]
  - Heart rate decreased [None]

NARRATIVE: CASE EVENT DATE: 20210528
